FAERS Safety Report 10079878 (Version 2)
Quarter: 2014Q2

REPORT INFORMATION
  Report Type: Spontaneous
  Country: US (occurrence: US)
  Receive Date: 20140415
  Receipt Date: 20140613
  Transmission Date: 20141212
  Serious: Yes (Life-Threatening, Hospitalization, Other)
  Sender: FDA-Public Use
  Company Number: US-BAYER-2014-054683

PATIENT
  Age: 31 Year
  Sex: Female

DRUGS (3)
  1. YASMIN [Suspect]
  2. INDOMETHACIN [Concomitant]
     Dosage: 25 MG, TID
     Route: 048
  3. ATIVAN [Concomitant]

REACTIONS (3)
  - Pulmonary embolism [None]
  - Deep vein thrombosis [None]
  - Thrombophlebitis superficial [None]
